FAERS Safety Report 6435688-7 (Version None)
Quarter: 2009Q4

REPORT INFORMATION
  Report Type: 
  Country: None (occurrence: None)
  Receive Date: 20091111
  Receipt Date: 20091028
  Transmission Date: 20100525
  Serious: Yes (Other)
  Sender: FDA-Public Use
  Company Number: PHHY2009BR47414

PATIENT
  Sex: Female

DRUGS (1)
  1. FORASEQ [Suspect]
     Indication: BRONCHITIS
     Dosage: UNK

REACTIONS (4)
  - DRUG ADMINISTRATION ERROR [None]
  - EPISTAXIS [None]
  - NAUSEA [None]
  - VOMITING [None]
